FAERS Safety Report 8461460-2 (Version None)
Quarter: 2012Q2

REPORT INFORMATION
  Report Type: 
  Country: None (occurrence: None)
  Receive Date: 20120323
  Receipt Date: 20110922
  Transmission Date: 20120825
  Serious: Yes (Hospitalization)
  Sender: FDA-Public Use
  Company Number: 163-21880-11093033

PATIENT
  Age: 67 Year
  Sex: Female

DRUGS (9)
  1. ALLOPURINOL [Concomitant]
  2. GABAPENTIN [Concomitant]
  3. REVLIMID [Suspect]
     Indication: MYELODYSPLASTIC SYNDROME
     Dosage: 5 MG, DAILY X 21 DAYS, PO; 10 MG, 1 IN 1 D, PO
     Route: 048
     Dates: start: 20110825
  4. REVLIMID [Suspect]
     Indication: MYELODYSPLASTIC SYNDROME
     Dosage: 5 MG, DAILY X 21 DAYS, PO; 10 MG, 1 IN 1 D, PO
     Route: 048
     Dates: start: 20110901
  5. PREDNISONE PAK (PREDNISONE) [Concomitant]
  6. PANTOPRAZOLE SODIUM [Concomitant]
  7. LISINOPRIL [Concomitant]
  8. CHLORTHALIDONE [Concomitant]
  9. PRENATAL 19 [Concomitant]

REACTIONS (1)
  - ANAEMIA [None]
